FAERS Safety Report 10445476 (Version 1)
Quarter: 2014Q3

REPORT INFORMATION
  Report Type: Spontaneous
  Country: US (occurrence: US)
  Receive Date: 20140908
  Receipt Date: 20140908
  Transmission Date: 20150326
  Serious: No
  Sender: FDA-Public Use
  Company Number: US-BRISTOL-MYERS SQUIBB COMPANY-20150785

PATIENT
  Sex: Male

DRUGS (4)
  1. CARBATROL [Concomitant]
     Active Substance: CARBAMAZEPINE
  2. CARBAMAZEPINE. [Concomitant]
     Active Substance: CARBAMAZEPINE
  3. LAMICTAL [Concomitant]
     Active Substance: LAMOTRIGINE
  4. ABILIFY [Suspect]
     Active Substance: ARIPIPRAZOLE
     Route: 048

REACTIONS (1)
  - Drug withdrawal syndrome [Unknown]
